FAERS Safety Report 24900212 (Version 2)
Quarter: 2025Q2

REPORT INFORMATION
  Report Type: Spontaneous
  Country: SE (occurrence: SE)
  Receive Date: 20250129
  Receipt Date: 20250605
  Transmission Date: 20250717
  Serious: Yes (Disabling)
  Sender: TEVA
  Company Number: None

PATIENT
  Age: 46 Year
  Sex: Male

DRUGS (2)
  1. MIRTAZAPINE [Suspect]
     Active Substance: MIRTAZAPINE
     Indication: Sleep disorder
     Route: 065
     Dates: start: 20210830, end: 20240731
  2. POTASSIUM CHLORIDE [Concomitant]
     Active Substance: POTASSIUM CHLORIDE
     Indication: Product used for unknown indication
     Route: 065

REACTIONS (12)
  - Rash [Unknown]
  - Abnormal dreams [Recovered/Resolved]
  - Seborrhoea [Not Recovered/Not Resolved]
  - Intraocular pressure increased [Recovered/Resolved]
  - Somnolence [Recovered/Resolved with Sequelae]
  - Increased appetite [Recovered/Resolved with Sequelae]
  - Fine motor skill dysfunction [Recovered/Resolved]
  - Joint swelling [Recovering/Resolving]
  - Urinary retention [Recovered/Resolved with Sequelae]
  - Formication [Recovered/Resolved with Sequelae]
  - Memory impairment [Not Recovered/Not Resolved]
  - Dysarthria [Recovered/Resolved]

NARRATIVE: CASE EVENT DATE: 20210830
